FAERS Safety Report 12477778 (Version 2)
Quarter: 2017Q2

REPORT INFORMATION
  Report Type: Report from Study
  Country: None (occurrence: CA)
  Receive Date: 20160617
  Receipt Date: 20170627
  Transmission Date: 20170830
  Serious: Yes (Other)
  Sender: FDA-Public Use
  Company Number: CA-ABBVIE-16K-028-1651496-00

PATIENT
  Sex: Male

DRUGS (2)
  1. HUMIRA [Suspect]
     Active Substance: ADALIMUMAB
     Route: 058
     Dates: start: 20170613
  2. HUMIRA [Suspect]
     Active Substance: ADALIMUMAB
     Indication: ANKYLOSING SPONDYLITIS
     Route: 058
     Dates: start: 20120514, end: 20170315

REACTIONS (5)
  - Renal impairment [Not Recovered/Not Resolved]
  - Dehydration [Unknown]
  - Diarrhoea [Unknown]
  - Ear infection [Unknown]
  - Dialysis [Recovered/Resolved]

NARRATIVE: CASE EVENT DATE: 2017
